FAERS Safety Report 5793294-1 (Version None)
Quarter: 2008Q2

REPORT INFORMATION
  Report Type: 
  Country: None (occurrence: None)
  Receive Date: 20080627
  Receipt Date: 20080613
  Transmission Date: 20081010
  Serious: Yes (Hospitalization)
  Sender: FDA-Public Use
  Company Number: JP-GENENTECH-263194

PATIENT
  Sex: Male
  Weight: 54 kg

DRUGS (3)
  1. BEVACIZUMAB [Suspect]
     Indication: COLON CANCER
     Dosage: 5 MG/KG, Q2W
     Route: 041
     Dates: start: 20080327
  2. TS-1 [Suspect]
     Indication: COLON CANCER
     Dosage: 5 MG, QD
     Route: 048
     Dates: start: 20080327
  3. IRINOTECAN HCL [Suspect]
     Indication: COLON CANCER
     Dosage: 100 MG/M2, Q2W
     Route: 041
     Dates: start: 20080327

REACTIONS (3)
  - HERPES ZOSTER [None]
  - PLATELET COUNT DECREASED [None]
  - WHITE BLOOD CELL COUNT DECREASED [None]
